FAERS Safety Report 25681619 (Version 2)
Quarter: 2025Q4

REPORT INFORMATION
  Report Type: Report from Study
  Country: GB (occurrence: GB)
  Receive Date: 20250814
  Receipt Date: 20251017
  Transmission Date: 20260118
  Serious: Yes (Other)
  Sender: NOVARTIS
  Company Number: GB-002147023-NVSC2025GB036804

PATIENT
  Sex: Female

DRUGS (1)
  1. COSENTYX [Suspect]
     Active Substance: SECUKINUMAB
     Indication: Psoriatic arthropathy
     Dosage: 300 MG, QMO
     Route: 065

REACTIONS (10)
  - Diabetes mellitus [Recovering/Resolving]
  - Pain [Unknown]
  - Dry skin [Unknown]
  - Pain in extremity [Unknown]
  - Skin irritation [Unknown]
  - Skin discomfort [Unknown]
  - Peripheral swelling [Unknown]
  - Joint swelling [Unknown]
  - Fluid retention [Unknown]
  - Musculoskeletal stiffness [Unknown]
